FAERS Safety Report 6061925-7 (Version None)
Quarter: 2009Q1

REPORT INFORMATION
  Report Type: 
  Country: None (occurrence: None)
  Receive Date: 20090202
  Receipt Date: 20090127
  Transmission Date: 20090719
  Serious: Yes (Other)
  Sender: FDA-Public Use
  Company Number: PHHY2009CA03344

PATIENT
  Age: 59 Year
  Sex: Female

DRUGS (4)
  1. RASILEZ [Suspect]
     Dosage: 300 MG
     Route: 048
     Dates: start: 20090124
  2. NORVASC [Suspect]
     Dosage: 5 MG
  3. ASPIRIN [Concomitant]
  4. CRESTOR [Concomitant]

REACTIONS (2)
  - HEART RATE INCREASED [None]
  - HYPERTENSION [None]
